FAERS Safety Report 9071201 (Version 1)
Quarter: 2013Q1

REPORT INFORMATION
  Report Type: Report from Study
  Country: US (occurrence: US)
  Receive Date: 20130129
  Receipt Date: 20130129
  Transmission Date: 20140127
  Serious: No
  Sender: FDA-Public Use
  Company Number: US-ABBOTT-12P-163-0928611-00

PATIENT
  Sex: Female
  Weight: 87.17 kg

DRUGS (6)
  1. HUMIRA 40 MG/ 0.8 ML PRE-FILLED SYRINGE [Suspect]
     Indication: RHEUMATOID ARTHRITIS
     Route: 058
     Dates: start: 200901
  2. SIMVASTATIN [Concomitant]
     Indication: BLOOD CHOLESTEROL
  3. ZOLOFT [Concomitant]
     Indication: ANXIETY
  4. OMEPRAZOLE [Concomitant]
     Indication: GASTROOESOPHAGEAL REFLUX DISEASE
  5. ALPRAZOLAM [Concomitant]
     Indication: ANXIETY
  6. ZYRTEC [Concomitant]
     Indication: HYPERSENSITIVITY

REACTIONS (1)
  - Drug eruption [Not Recovered/Not Resolved]
